FAERS Safety Report 20848194 (Version 1)
Quarter: 2022Q2

REPORT INFORMATION
  Report Type: Spontaneous
  Country: US (occurrence: None)
  Receive Date: 20220518
  Receipt Date: 20220518
  Transmission Date: 20220721
  Serious: Yes (Death)
  Sender: FDA-Public Use
  Company Number: None

PATIENT
  Sex: Male
  Weight: 79.83 kg

DRUGS (15)
  1. IMATINIB MESYLATE [Suspect]
     Active Substance: IMATINIB MESYLATE
     Dosage: FREQUENCY : DAILY;?
     Route: 048
     Dates: start: 20220510
  2. ALLOPURINOL [Concomitant]
     Active Substance: ALLOPURINOL
  3. BISACODYL [Concomitant]
     Active Substance: BISACODYL
  4. VITAMIN D3 [Concomitant]
     Active Substance: CHOLECALCIFEROL
  5. LEVOTHYROXINE [Concomitant]
     Active Substance: LEVOTHYROXINE
  6. VITAMINS [Concomitant]
     Active Substance: VITAMINS
  7. WARFARIN [Concomitant]
     Active Substance: WARFARIN
  8. FERRALET [Concomitant]
  9. MULTAQ [Concomitant]
     Active Substance: DRONEDARONE
  10. FLAXSEED [Concomitant]
     Active Substance: FLAX SEED
  11. FISH OIL [Concomitant]
     Active Substance: FISH OIL
  12. AUGMENTIN [Concomitant]
     Active Substance: AMOXICILLIN\CLAVULANATE POTASSIUM
  13. MUCINEX [Concomitant]
     Active Substance: GUAIFENESIN
  14. COLACE [Concomitant]
     Active Substance: DOCUSATE SODIUM
  15. TAMSULOSIN [Concomitant]
     Active Substance: TAMSULOSIN

REACTIONS (1)
  - Death [None]
